FAERS Safety Report 6355851-3 (Version None)
Quarter: 2009Q3

REPORT INFORMATION
  Report Type: 
  Country: None (occurrence: None)
  Receive Date: 20090911
  Receipt Date: 20090911
  Transmission Date: 20100115
  Serious: Yes (Life-Threatening, Hospitalization)
  Sender: FDA-Public Use
  Company Number: None

PATIENT
  Sex: Female
  Weight: 130.18 kg

DRUGS (5)
  1. ZESTRIL [Suspect]
     Indication: HYPERTENSION
     Dosage: 20MG DAILY ORALLY
     Route: 048
  2. ASPIRIN [Concomitant]
  3. LOVASTATIN [Concomitant]
  4. LANTUS [Concomitant]
  5. NOVOLOG [Concomitant]

REACTIONS (4)
  - ANGIOEDEMA [None]
  - DYSPHONIA [None]
  - PRURITUS [None]
  - URTICARIA [None]
